FAERS Safety Report 21001119 (Version 2)
Quarter: 2022Q3

REPORT INFORMATION
  Report Type: Spontaneous
  Country: US (occurrence: US)
  Receive Date: 20220624
  Receipt Date: 20220914
  Transmission Date: 20221027
  Serious: Yes (Other)
  Sender: FDA-Public Use
  Company Number: US-BIOGEN-2022BI01133817

PATIENT
  Sex: Female

DRUGS (1)
  1. TECFIDERA [Suspect]
     Active Substance: DIMETHYL FUMARATE
     Indication: Multiple sclerosis
     Dosage: MAINTENANCE DOSE
     Route: 050
     Dates: start: 20160210

REACTIONS (7)
  - Colitis [Not Recovered/Not Resolved]
  - Rectal haemorrhage [Recovered/Resolved]
  - Barrett^s oesophagus [Not Recovered/Not Resolved]
  - Precancerous cells present [Unknown]
  - Gastric disorder [Not Recovered/Not Resolved]
  - Epistaxis [Recovered/Resolved]
  - Dyspepsia [Recovered/Resolved]
